FAERS Safety Report 7330232-4 (Version None)
Quarter: 2011Q1

REPORT INFORMATION
  Report Type: 
  Country: None (occurrence: None)
  Receive Date: 20110303
  Receipt Date: 20110221
  Transmission Date: 20110831
  Serious: Yes (Other)
  Sender: FDA-Public Use
  Company Number: US-BAYER-2011-016941

PATIENT
  Sex: Female

DRUGS (5)
  1. ALLEGRA [Concomitant]
  2. NEXIUM [Concomitant]
  3. ADVAIR DISKUS 100/50 [Concomitant]
  4. AVELOX [Suspect]
     Indication: SINUSITIS
     Dosage: DAILY DOSE 400 MG
     Route: 048
     Dates: start: 20110218, end: 20110219
  5. PROAIR HFA [Concomitant]

REACTIONS (5)
  - NAUSEA [None]
  - INSOMNIA [None]
  - ABASIA [None]
  - OEDEMA PERIPHERAL [None]
  - PARAESTHESIA [None]
